FAERS Safety Report 5969053-3 (Version None)
Quarter: 2008Q4

REPORT INFORMATION
  Report Type: 
  Country: None (occurrence: None)
  Receive Date: 20081126
  Receipt Date: 20081121
  Transmission Date: 20090506
  Serious: Yes (Disabling)
  Sender: FDA-Public Use
  Company Number: VE-ABBOTT-08P-178-0489458-00

PATIENT
  Age: 33 Year
  Sex: Male

DRUGS (1)
  1. ZEMPLAR [Suspect]
     Indication: CONGENITAL CYSTIC KIDNEY DISEASE
     Dosage: 16580
     Route: 042
     Dates: start: 20080801, end: 20081010

REACTIONS (2)
  - ARTHRALGIA [None]
  - GAIT DISTURBANCE [None]
